FAERS Safety Report 6996703-5 (Version None)
Quarter: 2010Q3

REPORT INFORMATION
  Report Type: 
  Country: None (occurrence: None)
  Receive Date: 20100918
  Receipt Date: 20090610
  Transmission Date: 20110219
  Serious: No
  Sender: FDA-Public Use
  Company Number: US-WYE-H09710709

PATIENT
  Sex: Female

DRUGS (3)
  1. EFFEXOR XR [Suspect]
     Indication: DEPRESSION
     Dosage: 37.5 MG EVERY 1 TOT
     Route: 048
     Dates: start: 20090601, end: 20090601
  2. METHADONE [Concomitant]
  3. PERCOCET [Concomitant]

REACTIONS (5)
  - COLD SWEAT [None]
  - DIZZINESS [None]
  - NAUSEA [None]
  - TREMOR [None]
  - UNEVALUABLE EVENT [None]
